FAERS Safety Report 20544959 (Version 1)
Quarter: 2022Q1

REPORT INFORMATION
  Report Type: Spontaneous
  Country: IT (occurrence: IT)
  Receive Date: 20220303
  Receipt Date: 20220303
  Transmission Date: 20220423
  Serious: Yes (Hospitalization)
  Sender: FDA-Public Use
  Company Number: IT-STRIDES ARCOLAB LIMITED-2022SP002025

PATIENT
  Age: 30 Year
  Sex: Female

DRUGS (8)
  1. OLANZAPINE [Suspect]
     Active Substance: OLANZAPINE
     Indication: Anorexia nervosa
     Dosage: 1.25 MILLIGRAM/PER DAY,AT BEDTIME
     Route: 065
  2. OLANZAPINE [Suspect]
     Active Substance: OLANZAPINE
     Dosage: 5 MILLIGRAM/PERDAY,AT BEDTIME
     Route: 065
  3. CITALOPRAM [Suspect]
     Active Substance: CITALOPRAM HYDROBROMIDE
     Indication: Anorexia nervosa
     Dosage: UNK
     Route: 065
  4. TRAZODONE [Suspect]
     Active Substance: TRAZODONE HYDROCHLORIDE
     Indication: Anorexia nervosa
     Dosage: UNK
     Route: 065
  5. ARIPIPRAZOLE [Suspect]
     Active Substance: ARIPIPRAZOLE
     Indication: Anorexia nervosa
     Dosage: 5 MILLIGRAM/PER DAY,IN THE MORNING
     Route: 065
  6. ESCITALOPRAM [Concomitant]
     Active Substance: ESCITALOPRAM OXALATE
     Indication: Anorexia nervosa
     Dosage: 10 MILLIGRAM/PER DAY
     Route: 065
  7. LORAZEPAM [Concomitant]
     Active Substance: LORAZEPAM
     Indication: Anorexia nervosa
     Dosage: 1 MILLIGRAM/PER DAY
     Route: 065
  8. LORAZEPAM [Concomitant]
     Active Substance: LORAZEPAM
     Dosage: 2 MILLIGRAM/PER DAY
     Route: 065

REACTIONS (3)
  - Somnambulism [Recovered/Resolved]
  - Drug ineffective [Unknown]
  - Off label use [Unknown]
